FAERS Safety Report 6756204-6 (Version None)
Quarter: 2010Q2

REPORT INFORMATION
  Report Type: 
  Country: None (occurrence: None)
  Receive Date: 20100604
  Receipt Date: 20100531
  Transmission Date: 20101027
  Serious: Yes (Life-Threatening, Hospitalization)
  Sender: FDA-Public Use
  Company Number: PHHO2010DE08420

PATIENT
  Sex: Male

DRUGS (3)
  1. SANDOSTATIN [Suspect]
     Indication: THYMOMA
     Dosage: 30MG EVERY 2 WEEKS
     Route: 030
     Dates: start: 20100115, end: 20100512
  2. PREDNISOLONE [Suspect]
     Dosage: 30 MG, QD
     Route: 048
     Dates: start: 20100115
  3. FRAXIPARIN [Concomitant]

REACTIONS (2)
  - FASCIITIS [None]
  - SEPSIS [None]
